FAERS Safety Report 22068881 (Version 1)
Quarter: 2023Q1

REPORT INFORMATION
  Report Type: Spontaneous
  Country: GB (occurrence: GB)
  Receive Date: 20230307
  Receipt Date: 20230307
  Transmission Date: 20230418
  Serious: Yes (Death, Hospitalization, Other)
  Sender: FDA-Public Use
  Company Number: GB-GLAXOSMITHKLINE-GB2023GSK034145

PATIENT

DRUGS (2)
  1. ALBUTEROL [Suspect]
     Active Substance: ALBUTEROL
     Indication: Asthma
     Dosage: UNK
     Dates: start: 201712
  2. ALBUTEROL [Suspect]
     Active Substance: ALBUTEROL
     Dosage: 10 PUFF(S), Z (EVERY 4 HOURS)

REACTIONS (4)
  - Respiratory arrest [Unknown]
  - General physical health deterioration [Unknown]
  - Overdose [Fatal]
  - Therapeutic product effect incomplete [Unknown]
